FAERS Safety Report 25855875 (Version 1)
Quarter: 2025Q3

REPORT INFORMATION
  Report Type: Spontaneous
  Country: US (occurrence: US)
  Receive Date: 20250928
  Receipt Date: 20250928
  Transmission Date: 20251021
  Serious: Yes (Other)
  Sender: JOHNSON AND JOHNSON
  Company Number: US-JNJFOC-20250936569

PATIENT
  Age: 4 Year
  Sex: Male

DRUGS (2)
  1. STELARA [Suspect]
     Active Substance: USTEKINUMAB
     Indication: Gastrointestinal inflammation
     Route: 058
     Dates: start: 20240718
  2. STELARA [Suspect]
     Active Substance: USTEKINUMAB
     Indication: Colitis

REACTIONS (3)
  - Colitis [Not Recovered/Not Resolved]
  - Gastrointestinal inflammation [Not Recovered/Not Resolved]
  - Off label use [Unknown]
